FAERS Safety Report 17640963 (Version 1)
Quarter: 2020Q2

REPORT INFORMATION
  Report Type: Spontaneous
  Country: US (occurrence: US)
  Receive Date: 20200408
  Receipt Date: 20200408
  Transmission Date: 20200713
  Serious: No
  Sender: FDA-Public Use
  Company Number: US-CEDIPROF, INC.-2082460

PATIENT
  Age: 58 Year
  Sex: Female

DRUGS (1)
  1. LEVO-T [Suspect]
     Active Substance: LEVOTHYROXINE SODIUM
     Indication: PRODUCT USED FOR UNKNOWN INDICATION

REACTIONS (14)
  - Psychomotor hyperactivity [Unknown]
  - Muscular weakness [Unknown]
  - Swelling face [Unknown]
  - Feeling cold [Unknown]
  - Irritability [Unknown]
  - Weight decreased [Unknown]
  - Bone density decreased [Unknown]
  - Pyrexia [Unknown]
  - Alopecia [Unknown]
  - Fatigue [Unknown]
  - Headache [Unknown]
  - Goitre [Unknown]
  - Flushing [Unknown]
  - Tremor [Unknown]
